FAERS Safety Report 9332738 (Version 1)
Quarter: 2013Q2

REPORT INFORMATION
  Report Type: Spontaneous
  Country: GB (occurrence: None)
  Receive Date: 20130603
  Receipt Date: 20130603
  Transmission Date: 20140414
  Serious: Yes (Hospitalization)
  Sender: FDA-Public Use
  Company Number: GB-MACLEODS PHARMA-000098

PATIENT
  Sex: Male

DRUGS (2)
  1. LEVOFLOXACIN (LEVOFLOXACIN) [Suspect]
  2. CIPROFLOXACIN (CIPROFLOXACIN) [Suspect]
     Indication: PRODUCT USED FOR UNKNOWN INDICATION

REACTIONS (3)
  - Respiratory tract infection [None]
  - Drug interaction [None]
  - Headache [None]
